FAERS Safety Report 6322211-0 (Version None)
Quarter: 2009Q3

REPORT INFORMATION
  Report Type: 
  Country: None (occurrence: None)
  Receive Date: 20090824
  Receipt Date: 20090818
  Transmission Date: 20100115
  Serious: Yes (Life-Threatening, Hospitalization)
  Sender: FDA-Public Use
  Company Number: US-BAYER-200928993GPV

PATIENT
  Age: 78 Year
  Sex: Male

DRUGS (7)
  1. ASPIRIN [Suspect]
     Indication: DRUG USE FOR UNKNOWN INDICATION
     Route: 048
     Dates: start: 20001205, end: 20090525
  2. DALTEPARIN SODIUM [Suspect]
     Indication: LUNG NEOPLASM MALIGNANT
     Route: 065
  3. DALTEPARIN SODIUM [Suspect]
     Route: 065
     Dates: start: 20090310, end: 20090525
  4. CARBOPLATIN [Suspect]
     Indication: LUNG NEOPLASM MALIGNANT
     Route: 065
     Dates: start: 20090519, end: 20090519
  5. GEMCITABIN [Suspect]
     Indication: LUNG NEOPLASM MALIGNANT
     Route: 065
     Dates: start: 20090512, end: 20090512
  6. SOTALOL HYDROCHLORIDE [Concomitant]
     Dates: start: 20000226
  7. SIMVASTATIN [Concomitant]

REACTIONS (4)
  - EPISTAXIS [None]
  - NEUTROPHIL COUNT DECREASED [None]
  - PLATELET COUNT DECREASED [None]
  - WHITE BLOOD CELL COUNT DECREASED [None]
